FAERS Safety Report 7630067-9 (Version None)
Quarter: 2011Q3

REPORT INFORMATION
  Report Type: 
  Country: None (occurrence: None)
  Receive Date: 20110722
  Receipt Date: 20110720
  Transmission Date: 20111222
  Serious: Yes (Death, Other)
  Sender: FDA-Public Use
  Company Number: US-ASTRAZENECA-2009UW10691

PATIENT
  Age: 12861 Day
  Sex: Male
  Weight: 68 kg

DRUGS (7)
  1. THORAZINE [Concomitant]
     Dates: start: 19830901
  2. TRAZODIL [Concomitant]
     Dates: start: 20030613
  3. ABILIFY [Concomitant]
  4. SEROQUEL [Suspect]
     Indication: BIPOLAR DISORDER
     Route: 048
     Dates: end: 20061001
  5. SEROQUEL [Suspect]
     Dosage: 100 TO 200 MG
     Route: 048
     Dates: start: 20030613
  6. PAXIL [Concomitant]
     Dates: start: 20030620
  7. LORAZEPAM [Concomitant]
     Dates: start: 20030613

REACTIONS (3)
  - TYPE 1 DIABETES MELLITUS [None]
  - DIABETIC KETOACIDOSIS [None]
  - DIABETIC COMA [None]
